FAERS Safety Report 21838913 (Version 3)
Quarter: 2023Q1

REPORT INFORMATION
  Report Type: Spontaneous
  Country: FR (occurrence: FR)
  Receive Date: 20230109
  Receipt Date: 20230304
  Transmission Date: 20230418
  Serious: Yes (Other)
  Sender: FDA-Public Use
  Company Number: None

PATIENT
  Age: 54 Year
  Sex: Female

DRUGS (18)
  1. OLANZAPINE [Suspect]
     Active Substance: OLANZAPINE
     Indication: Neurodevelopmental disorder
     Dosage: 10 MG, QD (1-0-1)
     Route: 048
     Dates: start: 201612, end: 20221121
  2. OLANZAPINE [Suspect]
     Active Substance: OLANZAPINE
     Dosage: 15 MG, QD (1-0-1)
     Route: 065
     Dates: start: 20221122
  3. BROMAZEPAM [Suspect]
     Active Substance: BROMAZEPAM
     Indication: Neurodevelopmental disorder
     Dosage: 1.5 MG, QD (0.25 CP MORNING AND 0.5 EVENING)
     Route: 048
     Dates: start: 2015
  4. DEPAKOTE [Suspect]
     Active Substance: DIVALPROEX SODIUM
     Indication: Neurodevelopmental disorder
     Dosage: 1.5 G, QD (MORNING AND EVENING, 1.1.1)
     Route: 048
     Dates: start: 2015
  5. PIPAMPERONE [Suspect]
     Active Substance: PIPAMPERONE
     Indication: Neurodevelopmental disorder
     Dosage: 120 MG, QD (COMPRIME SECABLE, SCORED TABLET, 1 CP MORNING, NOON AND EVENING))
     Route: 048
     Dates: start: 2015, end: 20220905
  6. PIPAMPERONE [Suspect]
     Active Substance: PIPAMPERONE
     Dosage: 120 MG, QD
     Route: 065
     Dates: start: 2016, end: 20220207
  7. PIPAMPERONE [Suspect]
     Active Substance: PIPAMPERONE
     Dosage: 80 MG, QD
     Route: 065
     Dates: start: 20220208, end: 20220530
  8. PIPAMPERONE [Suspect]
     Active Substance: PIPAMPERONE
     Dosage: 40 MG, QD
     Route: 065
     Dates: start: 20220531, end: 20220905
  9. ACETAMINOPHEN\BELLADONNA LEAF\CAFFEINE\OPIUM [Suspect]
     Active Substance: ACETAMINOPHEN\BELLADONNA LEAF\CAFFEINE\OPIUM
     Indication: Pain
     Dosage: 3 DOSAGE FORM, QD (2 CAPSULES MORNING AND EVENING FOR 7 DAYS))
     Route: 048
     Dates: start: 20211022, end: 20211213
  10. ACETAMINOPHEN\BELLADONNA LEAF\CAFFEINE\OPIUM [Suspect]
     Active Substance: ACETAMINOPHEN\BELLADONNA LEAF\CAFFEINE\OPIUM
     Dosage: UNK (2 CAPSULES MORNING, NOON AND EVENING)
     Route: 065
     Dates: start: 20211108
  11. ACETAMINOPHEN\BELLADONNA LEAF\CAFFEINE\OPIUM [Suspect]
     Active Substance: ACETAMINOPHEN\BELLADONNA LEAF\CAFFEINE\OPIUM
     Dosage: UNK (1 CAPSULE MORNING, NOON AND EVENING))
     Route: 065
     Dates: start: 20211126
  12. ACETAMINOPHEN\BELLADONNA LEAF\CAFFEINE\OPIUM [Suspect]
     Active Substance: ACETAMINOPHEN\BELLADONNA LEAF\CAFFEINE\OPIUM
     Dosage: UNK (1 CAPSULE MORNING, NOON AND EVENING))
     Route: 065
     Dates: start: 20211203, end: 20211213
  13. DOLIPRANE [Concomitant]
     Active Substance: ACETAMINOPHEN
     Indication: Pain
     Dosage: 1 G, QD (MIDDAY)
     Route: 048
     Dates: start: 20211022, end: 20211029
  14. CHOLECALCIFEROL [Concomitant]
     Active Substance: CHOLECALCIFEROL
     Indication: Product used for unknown indication
     Dosage: 1 DOSAGE FORM, QMO (1 AMPOULE/MONTH))
     Route: 065
     Dates: start: 20211203
  15. LEUCOVORIN CALCIUM [Concomitant]
     Active Substance: LEUCOVORIN CALCIUM
     Indication: Product used for unknown indication
     Dosage: 25 MG, BID (2-0-0)
     Route: 065
  16. SERTRALINE [Concomitant]
     Active Substance: SERTRALINE HYDROCHLORIDE
     Indication: Product used for unknown indication
     Dosage: 50 MG, BID  (2-0-0)
     Route: 065
  17. LOXAPINE [Concomitant]
     Active Substance: LOXAPINE
     Indication: Agitation
     Dosage: 1 DOSAGE FORM, TID
     Route: 065
  18. LOXAPINE [Concomitant]
     Active Substance: LOXAPINE
     Indication: Aggression

REACTIONS (2)
  - Cholestasis [Recovering/Resolving]
  - Product use in unapproved indication [Not Recovered/Not Resolved]

NARRATIVE: CASE EVENT DATE: 20150101
